FAERS Safety Report 6617633-4 (Version None)
Quarter: 2010Q1

REPORT INFORMATION
  Report Type: 
  Country: None (occurrence: None)
  Receive Date: 20100308
  Receipt Date: 20100225
  Transmission Date: 20100710
  Serious: Yes (Other)
  Sender: FDA-Public Use
  Company Number: US-BIOGENIDEC-2009BI039188

PATIENT
  Sex: Female
  Weight: 61 kg

DRUGS (1)
  1. AVONEX [Suspect]
     Indication: MULTIPLE SCLEROSIS
     Route: 030
     Dates: start: 19980101

REACTIONS (5)
  - FATIGUE [None]
  - HERPES ZOSTER [None]
  - NON-HODGKIN'S LYMPHOMA [None]
  - PAIN [None]
  - STRESS [None]
